FAERS Safety Report 4608756-X (Version None)
Quarter: 2005Q1

REPORT INFORMATION
  Report Type: 
  Country: None (occurrence: None)
  Receive Date: 20050315
  Receipt Date: 20050308
  Transmission Date: 20050727
  Serious: Yes (Hospitalization, Other)
  Sender: FDA-Public Use
  Company Number: US-BRISTOL-MYERS SQUIBB COMPANY-12889846

PATIENT
  Age: 35 Year
  Sex: Male
  Weight: 104 kg

DRUGS (6)
  1. CETUXIMAB [Suspect]
     Indication: GASTRIC CANCER
     Dosage: LAST CETUXIMAB 250 MG/M2 INFUSION (570 MG/M2 IV EVERY WEEK (Q) X 6) ADMINISTERED ON 01-FEB-2005.
     Route: 042
     Dates: start: 20050201, end: 20050201
  2. CARBOPLATIN [Suspect]
     Indication: GASTRIC CANCER
     Dosage: LAST INFUSION OF CARBOPLATIN AUC=2 (328 MG IV EVERY (Q) WEEK X 6) ADMINISTERED ON 01-FEB-2005.
     Route: 042
     Dates: start: 20050201, end: 20050201
  3. PACLITAXEL [Suspect]
     Indication: GASTRIC CANCER
     Dosage: LAST INFUSION PACLITAXEL 50 MG/M2 (114 MG IV EVERY (Q) WEEK X 6) ADMINISTERED ON 01-FEB-2005.
     Route: 042
     Dates: start: 20050201, end: 20050201
  4. RADIATION THERAPY [Suspect]
     Indication: GASTRIC CANCER
  5. NORVASC [Concomitant]
     Indication: HYPERTENSION
  6. HYDROCHLOROTHIAZIDE [Concomitant]
     Indication: HYPERTENSION

REACTIONS (3)
  - GASTRITIS [None]
  - OESOPHAGITIS [None]
  - VENTRICULAR TACHYCARDIA [None]
